FAERS Safety Report 7176398-0 (Version None)
Quarter: 2010Q4

REPORT INFORMATION
  Report Type: 
  Country: None (occurrence: None)
  Receive Date: 20101220
  Receipt Date: 20101213
  Transmission Date: 20110411
  Serious: Yes (Other)
  Sender: FDA-Public Use
  Company Number: BR-US-EMD SERONO, INC.-7032075

PATIENT
  Sex: Female

DRUGS (8)
  1. REBIF [Suspect]
     Indication: RELAPSING-REMITTING MULTIPLE SCLEROSIS
     Route: 058
     Dates: start: 20020404
  2. PANTOPRAZOLE [Concomitant]
  3. DYPIRONE (DIPYRONE) [Concomitant]
  4. HYDROCHLOROTHIAZIDE [Concomitant]
  5. ATENOLOL [Concomitant]
  6. LOSARTAN [Concomitant]
  7. AZORGA (AZARGA) [Concomitant]
  8. EPITEZAN [Concomitant]

REACTIONS (2)
  - GLAUCOMA [None]
  - INJECTION SITE ERYTHEMA [None]
